FAERS Safety Report 8513993-8 (Version None)
Quarter: 2012Q3

REPORT INFORMATION
  Report Type: 
  Country: None (occurrence: None)
  Receive Date: 20120717
  Receipt Date: 20120709
  Transmission Date: 20120928
  Serious: Yes (Other)
  Sender: FDA-Public Use
  Company Number: US-JNJFOC-20120705858

PATIENT
  Age: 68 Year
  Sex: Male

DRUGS (1)
  1. NICOTINE [Suspect]
     Indication: SMOKING CESSATION THERAPY
     Dosage: 16-18 GUMS A DAY SINCE 12 YEARS
     Route: 048

REACTIONS (4)
  - INTENTIONAL DRUG MISUSE [None]
  - NICOTINE DEPENDENCE [None]
  - BILE DUCT CANCER [None]
  - EPIGASTRIC DISCOMFORT [None]
